FAERS Safety Report 14966133 (Version 5)
Quarter: 2020Q3

REPORT INFORMATION
  Report Type: Spontaneous
  Country: ES (occurrence: ES)
  Receive Date: 20180603
  Receipt Date: 20200930
  Transmission Date: 20201102
  Serious: Yes (Hospitalization, Other)
  Sender: FDA-Public Use
  Company Number: PHHY2018ES010004

PATIENT
  Age: 67 Year
  Sex: Male

DRUGS (11)
  1. FLUPHENAZINE [Interacting]
     Active Substance: FLUPHENAZINE
     Indication: SCHIZOPHRENIA
     Dosage: 25 MG, Q4W (FOR 6 YEARS UP TO DATE (1 VIAL OF 25 MG EVERY 4 WEEKS)
     Route: 065
  2. QUETIAPINE. [Suspect]
     Active Substance: QUETIAPINE
     Indication: SCHIZOPHRENIA
     Dosage: 300 MG, QD
     Route: 065
  3. BIPERIDEN [Interacting]
     Active Substance: BIPERIDEN
     Dosage: 1 DF, Q24H
     Route: 065
  4. ATORVASTATIN [Interacting]
     Active Substance: ATORVASTATIN
     Indication: DYSLIPIDAEMIA
     Dosage: 10 MG, QD
     Route: 065
     Dates: start: 201305
  5. DIAZEPAM. [Interacting]
     Active Substance: DIAZEPAM
     Dosage: 7.5 MG (7.5 MG MORE OF DIAZEPAM WAS ADMINISTERED)
     Route: 065
     Dates: start: 201612
  6. QUETIAPINE. [Interacting]
     Active Substance: QUETIAPINE
     Dosage: 1 DF, Q24H (FOR 6 YEARS UP TO DATE)
     Route: 065
  7. BIPERIDEN [Interacting]
     Active Substance: BIPERIDEN
     Indication: SCHIZOPHRENIA
     Dosage: 5 MG, Q4W (1 VIAL OF 5 MG, EVERY 4 WEEKS ,FOR 6 YEARS UP TO DATE)
     Route: 048
  8. BIPERIDEN [Interacting]
     Active Substance: BIPERIDEN
     Indication: EXTRAPYRAMIDAL DISORDER
     Dosage: 4 MG, QD
     Route: 048
  9. BIPERIDEN [Interacting]
     Active Substance: BIPERIDEN
     Dosage: 8 MG, QD (BE INCREASED FOR 4 DAYS)
     Route: 048
     Dates: start: 201612
  10. DIAZEPAM. [Interacting]
     Active Substance: DIAZEPAM
     Indication: EXTRAPYRAMIDAL DISORDER
     Dosage: 2.5 MG
     Route: 065
  11. DIAZEPAM. [Interacting]
     Active Substance: DIAZEPAM
     Dosage: 5 MG, QD
     Route: 065
     Dates: start: 201612

REACTIONS (9)
  - Toxicity to various agents [Recovered/Resolved]
  - Rhabdomyolysis [Recovered/Resolved]
  - Drug interaction [Unknown]
  - Pyrexia [Recovered/Resolved]
  - Fall [Recovered/Resolved]
  - Neuromuscular toxicity [Recovered/Resolved]
  - Extrapyramidal disorder [Recovered/Resolved]
  - Tremor [Recovering/Resolving]
  - Motor dysfunction [Recovered/Resolved]

NARRATIVE: CASE EVENT DATE: 201612
